FAERS Safety Report 23532207 (Version 2)
Quarter: 2024Q1

REPORT INFORMATION
  Report Type: Spontaneous
  Country: JP (occurrence: JP)
  Receive Date: 20240216
  Receipt Date: 20240307
  Transmission Date: 20240410
  Serious: Yes (Other)
  Sender: FDA-Public Use
  Company Number: JP-OTSUKA-2024_002323

PATIENT
  Age: 43 Year
  Sex: Female

DRUGS (5)
  1. SAMSCA [Suspect]
     Active Substance: TOLVAPTAN
     Indication: Congenital cystic kidney disease
     Dosage: 45MG/DAY
     Route: 048
     Dates: start: 20240125, end: 20240129
  2. SAMSCA [Suspect]
     Active Substance: TOLVAPTAN
     Dosage: 30MG/DAY
     Route: 048
     Dates: start: 20240124, end: 20240124
  3. ATORVASTATIN CALCIUM [Suspect]
     Active Substance: ATORVASTATIN CALCIUM
     Indication: Product used for unknown indication
     Dosage: 10 MG/DAY
     Route: 048
     Dates: end: 2024
  4. EZETIMIBE [Suspect]
     Active Substance: EZETIMIBE
     Indication: Product used for unknown indication
     Dosage: 10 MG/DAY
     Route: 048
     Dates: end: 2024
  5. OLMESARTAN MEDOXOMIL [Concomitant]
     Active Substance: OLMESARTAN MEDOXOMIL
     Indication: Product used for unknown indication
     Dosage: UNK
     Route: 048

REACTIONS (4)
  - Toxic skin eruption [Recovering/Resolving]
  - Blood bilirubin increased [Recovered/Resolved]
  - Gamma-glutamyltransferase increased [Unknown]
  - Off label use [Unknown]

NARRATIVE: CASE EVENT DATE: 20240124
